FAERS Safety Report 4326323-2 (Version None)
Quarter: 2004Q1

REPORT INFORMATION
  Report Type: 
  Country: None (occurrence: None)
  Receive Date: 20040323
  Receipt Date: 20040304
  Transmission Date: 20041129
  Serious: No
  Sender: FDA-Public Use
  Company Number: 04H-163-0253259-00

PATIENT
  Sex: 0

DRUGS (1)
  1. PRECEDEX [Suspect]
     Dates: start: 20040101

REACTIONS (1)
  - SINUS ARREST [None]
